FAERS Safety Report 20895453 (Version 1)
Quarter: 2022Q2

REPORT INFORMATION
  Report Type: Other
  Country: US (occurrence: None)
  Receive Date: 20220531
  Receipt Date: 20220531
  Transmission Date: 20220720
  Serious: Yes (Hospitalization)
  Sender: FDA-Public Use
  Company Number: US-ROCHE-3104803

PATIENT
  Age: 53 Year
  Sex: Female
  Weight: 63.560 kg

DRUGS (4)
  1. OCREVUS [Suspect]
     Active Substance: OCRELIZUMAB
     Indication: Relapsing-remitting multiple sclerosis
     Dosage: (PRESCRIBED AS 600 MG IV ONCE IN 6 MONTHS); DATE OF TREATMENT: 12/SEP/2020, 04/DEC/2020, 04/JUN/2021
     Route: 042
     Dates: start: 2017
  2. BACLOFEN [Concomitant]
     Active Substance: BACLOFEN
  3. TERBINAFINE [Concomitant]
     Active Substance: TERBINAFINE
  4. ROSUVASTATIN [Concomitant]
     Active Substance: ROSUVASTATIN

REACTIONS (2)
  - COVID-19 [Recovered/Resolved]
  - Fall [Unknown]

NARRATIVE: CASE EVENT DATE: 20210916
